FAERS Safety Report 16265229 (Version 1)
Quarter: 2019Q2

REPORT INFORMATION
  Report Type: Spontaneous
  Country: US (occurrence: US)
  Receive Date: 20190502
  Receipt Date: 20190502
  Transmission Date: 20190711
  Serious: Yes (Life-Threatening)
  Sender: FDA-Public Use
  Company Number: None

PATIENT
  Age: 53 Year
  Sex: Male
  Weight: 83.01 kg

DRUGS (3)
  1. SLOW-MO HIPPO KRATOM [Suspect]
     Active Substance: HERBALS\MITRAGYNINE
     Indication: PAIN IN EXTREMITY
     Route: 048
     Dates: start: 20190422, end: 20190430
  2. FLUDROCORTISON [Concomitant]
     Active Substance: FLUDROCORTISONE
  3. DIAZEPAM. [Concomitant]
     Active Substance: DIAZEPAM

REACTIONS (4)
  - Cardiac flutter [None]
  - Dizziness [None]
  - Presyncope [None]
  - Chest discomfort [None]

NARRATIVE: CASE EVENT DATE: 20190430
